FAERS Safety Report 25497197 (Version 1)
Quarter: 2025Q3

REPORT INFORMATION
  Report Type: Spontaneous
  Country: JP (occurrence: JP)
  Receive Date: 20250701
  Receipt Date: 20250701
  Transmission Date: 20251021
  Serious: Yes (Death, Hospitalization)
  Sender: SPECGX
  Company Number: JP-SPECGX-T202501145

PATIENT
  Age: 6 Decade
  Sex: Male

DRUGS (2)
  1. METHADONE [Suspect]
     Active Substance: METHADONE HYDROCHLORIDE
     Indication: Cancer pain
     Route: 048
  2. MORPHINE HYDROCHLORIDE [Suspect]
     Active Substance: MORPHINE HYDROCHLORIDE
     Indication: Cancer pain
     Route: 065

REACTIONS (10)
  - Rectal cancer [Fatal]
  - Malignant neoplasm progression [Fatal]
  - Pain [Unknown]
  - General physical health deterioration [Unknown]
  - Malaise [Unknown]
  - Anxiety [Unknown]
  - Fear of death [Unknown]
  - Adjustment disorder [Unknown]
  - Nausea [Unknown]
  - Constipation [Unknown]
